FAERS Safety Report 4658657-6 (Version None)
Quarter: 2005Q2

REPORT INFORMATION
  Report Type: 
  Country: None (occurrence: None)
  Receive Date: 20050509
  Receipt Date: 20050426
  Transmission Date: 20051028
  Serious: Yes (Hospitalization, Other)
  Sender: FDA-Public Use
  Company Number: 050427-0000632

PATIENT
  Age: 78 Year
  Sex: Female

DRUGS (11)
  1. CLORAZEPATE DIPOTASSIUM [Suspect]
     Indication: DEMENTIA
     Dosage: PO
     Route: 048
     Dates: end: 20040720
  2. EUPANTOL (PANTOPRAZOLE) [Suspect]
     Indication: MELAENA
     Dosage: 40.0 MG; QD; PO
     Route: 048
     Dates: start: 20040714
  3. PROFENID (KETOPROFNE) [Suspect]
     Indication: FEMUR FRACTURE
     Dosage: 50.0 MG; QD; PO
     Route: 048
     Dates: start: 20040808, end: 20040817
  4. ACETAMINOPHEN [Suspect]
     Indication: FEMUR FRACTURE
     Dosage: 3.0 GM; QD; PO
     Route: 048
     Dates: start: 20040807
  5. CLAVULIN (CLAVULANATE POTASSIUM/AMOXICILLIN TRIHYDRATE) [Suspect]
     Indication: LUNG DISORDER
     Dosage: 3.0 GM; QD; PO
     Route: 048
     Dates: start: 20040716, end: 20040725
  6. CLAVULIN (CLAVULANATE POTASSIUM/AMOXICILLIN TRIHYDRATE) [Suspect]
     Indication: PYREXIA
     Dosage: 3.0 GM; QD; PO
     Route: 048
     Dates: start: 20040716, end: 20040725
  7. MEPROBAMATE [Suspect]
     Indication: DEMENTIA
     Dosage: 400.0 MG; QD; PO
     Route: 048
     Dates: start: 20040810, end: 20040819
  8. HYDROXYZINE HCL [Suspect]
     Dosage: 25.0 MG; QD; PO
     Route: 048
     Dates: start: 20040810
  9. CYAMEMAZINE (CYAMEMAZINE) [Suspect]
     Indication: DEMENTIA
     Dosage: 75.0 MG; QD; PO
     Route: 048
     Dates: start: 20040810
  10. FOLIC ACID [Concomitant]
  11. VITAMIN B 1 AND B 6 [Concomitant]

REACTIONS (8)
  - ANAEMIA MACROCYTIC [None]
  - FALL [None]
  - FEMUR FRACTURE [None]
  - HEPATITIS CHOLESTATIC [None]
  - LUNG DISORDER [None]
  - MELAENA [None]
  - OVERDOSE [None]
  - PYREXIA [None]
